FAERS Safety Report 18963601 (Version 1)
Quarter: 2021Q1

REPORT INFORMATION
  Report Type: Spontaneous
  Country: DE (occurrence: DE)
  Receive Date: 20210303
  Receipt Date: 20210303
  Transmission Date: 20210420
  Serious: Yes (Hospitalization)
  Sender: FDA-Public Use
  Company Number: NVSC2021DE041783

PATIENT
  Age: 70 Year
  Sex: Female
  Weight: 51.4 kg

DRUGS (4)
  1. BEVACIZUMAB. [Concomitant]
     Active Substance: BEVACIZUMAB
     Indication: SMALL INTESTINE CARCINOMA
     Dosage: 260 MG (ZYKLUS 1, TAG 15)
     Route: 042
  2. ONDANSETRON [Concomitant]
     Active Substance: ONDANSETRON
     Indication: PREMEDICATION
     Dosage: UNK UNK, UNKNOWN
     Route: 042
  3. OXALIPLATIN HEXAL [Suspect]
     Active Substance: OXALIPLATIN
     Indication: SMALL INTESTINE CARCINOMA
     Dosage: 75 MG, CYCLIC (ZYKLUS 1, TAG 15 13. APPLIKATION, 250ML GLUCOSE 5% 2,5ML/MIN (GEPLANTE INFUSIONSDAUER
     Route: 042
  4. DEXAMETHASONE. [Concomitant]
     Active Substance: DEXAMETHASONE
     Indication: PREMEDICATION
     Dosage: UNK UNK, UNKNOWN
     Route: 065

REACTIONS (5)
  - Retching [Recovered/Resolved]
  - Dysarthria [Recovered/Resolved]
  - Vomiting [Recovered/Resolved]
  - Heart rate increased [Recovered/Resolved]
  - Cough [Recovered/Resolved]

NARRATIVE: CASE EVENT DATE: 20210104
